FAERS Safety Report 25963361 (Version 1)
Quarter: 2025Q4

REPORT INFORMATION
  Report Type: Spontaneous
  Country: US (occurrence: None)
  Receive Date: 20251024
  Receipt Date: 20251024
  Transmission Date: 20260117
  Serious: Yes (Hospitalization)
  Sender: FDA-CTU
  Company Number: None

PATIENT
  Age: 20 Year
  Sex: Male

DRUGS (3)
  1. NOVOSEVEN RT [Suspect]
     Active Substance: COAGULATION FACTOR VIIA RECOMBINANT HUMAN
     Indication: Factor IX deficiency
     Dosage: OTHER FREQUENCY : POST-OP;?
     Route: 042
     Dates: start: 20250902
  2. NOVOSEVEN RT [Suspect]
     Active Substance: COAGULATION FACTOR VIIA RECOMBINANT HUMAN
     Indication: Factor IX deficiency
     Dosage: OTHER FREQUENCY : POST-OP;?
     Route: 042
     Dates: start: 20250902
  3. NORMAL SALINE FLUSH (10ML) [Concomitant]

REACTIONS (1)
  - Elbow operation [None]

NARRATIVE: CASE EVENT DATE: 20250904
